FAERS Safety Report 7282971-1 (Version None)
Quarter: 2011Q1

REPORT INFORMATION
  Report Type: 
  Country: None (occurrence: None)
  Receive Date: 20110125
  Receipt Date: 20110113
  Transmission Date: 20110831
  Serious: Yes (Hospitalization)
  Sender: FDA-Public Use
  Company Number: 002167

PATIENT
  Sex: Male
  Weight: 111.1313 kg

DRUGS (10)
  1. LORAZEPAM [Concomitant]
  2. NEXIUM [Concomitant]
  3. VESICARE [Concomitant]
  4. ROTIGOTINE [Suspect]
     Indication: PARKINSON'S DISEASE
     Dosage: 4 MG QD, TRANSDERMAL
     Route: 062
     Dates: start: 20090715
  5. ATIVAN [Concomitant]
  6. CYMBALTA [Concomitant]
  7. LEVOTHYROXINE [Concomitant]
  8. AMBIEN CR [Concomitant]
  9. OXYCONTIN [Concomitant]
  10. DOXEPIN [Concomitant]

REACTIONS (11)
  - ARTHRALGIA [None]
  - FEMUR FRACTURE [None]
  - DYSARTHRIA [None]
  - SPINAL OSTEOARTHRITIS [None]
  - VERTEBRAL FORAMINAL STENOSIS [None]
  - DRUG SCREEN POSITIVE [None]
  - CONTUSION [None]
  - RADIUS FRACTURE [None]
  - ROAD TRAFFIC ACCIDENT [None]
  - HAEMATOMA [None]
  - SPINAL CORD COMPRESSION [None]
